FAERS Safety Report 23807244 (Version 1)
Quarter: 2024Q2

REPORT INFORMATION
  Report Type: Spontaneous
  Country: US (occurrence: US)
  Receive Date: 20240502
  Receipt Date: 20240502
  Transmission Date: 20240716
  Serious: No
  Sender: FDA-Public Use
  Company Number: US-RECKITT BENCKISER HEALTHCARE INT LIMITED-RB-109845-2023

PATIENT
  Sex: Female
  Weight: 80 kg

DRUGS (1)
  1. MUCINEX DM [Suspect]
     Active Substance: DEXTROMETHORPHAN HYDROBROMIDE\GUAIFENESIN
     Indication: Nasopharyngitis
     Dosage: 16 TABLETS
     Route: 048
     Dates: start: 20230907, end: 20230910

REACTIONS (1)
  - Drug ineffective for unapproved indication [Not Recovered/Not Resolved]
